FAERS Safety Report 6635851-6 (Version None)
Quarter: 2010Q1

REPORT INFORMATION
  Report Type: 
  Country: None (occurrence: None)
  Receive Date: 20100316
  Receipt Date: 20100308
  Transmission Date: 20100710
  Serious: Yes (Death, Hospitalization, Other)
  Sender: FDA-Public Use
  Company Number: US-TEVA-227103USA

PATIENT
  Age: 54 Year
  Sex: Male

DRUGS (5)
  1. FLUDARABINE PHOSPHATE [Suspect]
     Indication: CHRONIC LYMPHOCYTIC LEUKAEMIA
  2. RITUXIMAB [Suspect]
     Indication: CHRONIC LYMPHOCYTIC LEUKAEMIA
  3. CYCLOPHOSPHAMIDE [Suspect]
     Indication: CHRONIC LYMPHOCYTIC LEUKAEMIA
  4. ENTECAVIR [Suspect]
     Indication: HEPATITIS
  5. ADEFOVIR DIPIVOXIL KIT [Suspect]
     Indication: HEPATITIS

REACTIONS (2)
  - HEPATITIS B [None]
  - LACTIC ACIDOSIS [None]
